FAERS Safety Report 15098029 (Version 2)
Quarter: 2018Q3

REPORT INFORMATION
  Report Type: Spontaneous
  Country: None (occurrence: US)
  Receive Date: 20180702
  Receipt Date: 20180920
  Transmission Date: 20181010
  Serious: No
  Sender: FDA-Public Use
  Company Number: US-IGSA-SR10005334

PATIENT
  Age: 18 Year
  Sex: Male

DRUGS (4)
  1. GAMUNEX?C [Suspect]
     Active Substance: HUMAN IMMUNOGLOBULIN G
     Dosage: 90 G, Q.M.T.
     Route: 042
     Dates: start: 20070627
  2. GAMUNEX?C [Suspect]
     Active Substance: HUMAN IMMUNOGLOBULIN G
     Indication: PRIMARY IMMUNODEFICIENCY SYNDROME
     Dosage: 90 G, UNK
     Route: 042
     Dates: start: 201212, end: 20170817
  3. GAMUNEX?C [Suspect]
     Active Substance: HUMAN IMMUNOGLOBULIN G
     Dosage: 90 G, Q.4WK.
     Route: 042
     Dates: start: 201212, end: 20170817
  4. GAMUNEX?C [Suspect]
     Active Substance: HUMAN IMMUNOGLOBULIN G
     Dosage: 90 G, Q.M.T.
     Route: 042
     Dates: start: 20170818, end: 20170818

REACTIONS (3)
  - Laboratory test abnormal [Unknown]
  - Hepatitis B surface antibody [Unknown]
  - Hepatitis B core antibody [Unknown]

NARRATIVE: CASE EVENT DATE: 20170824
